FAERS Safety Report 12634994 (Version 1)
Quarter: 2016Q3

REPORT INFORMATION
  Report Type: Spontaneous
  Country: FR (occurrence: FR)
  Receive Date: 20160808
  Receipt Date: 20160808
  Transmission Date: 20161109
  Serious: Yes (Hospitalization)
  Sender: FDA-Public Use
  Company Number: FR-ABBVIE-15P-056-1525431-00

PATIENT
  Age: 17 Year
  Sex: Female

DRUGS (10)
  1. DEPAKENE CHRONO [Suspect]
     Active Substance: VALPROATE SODIUM
     Dosage: EXTENDED RELEASE
     Route: 048
     Dates: start: 20151009
  2. DEPAKENE CHRONO [Suspect]
     Active Substance: VALPROATE SODIUM
     Dosage: EXTENDED RELEASE
     Route: 048
     Dates: start: 20151013, end: 20151014
  3. DEPAKENE CHRONO [Suspect]
     Active Substance: VALPROATE SODIUM
     Dosage: EXTENDED RELEASE
     Route: 048
     Dates: start: 20151019
  4. DEPAKENE CHRONO [Suspect]
     Active Substance: VALPROATE SODIUM
     Dosage: EXTENDED RELEASE
     Route: 048
     Dates: start: 20151021
  5. DEPAKENE CHRONO [Suspect]
     Active Substance: VALPROATE SODIUM
     Route: 048
     Dates: start: 20150923, end: 20151007
  6. DEPAKENE CHRONO [Suspect]
     Active Substance: VALPROATE SODIUM
     Dosage: EXTENDED RELEASE
     Route: 048
     Dates: start: 20151012, end: 20151012
  7. LAMICTAL [Suspect]
     Active Substance: LAMOTRIGINE
     Indication: JUVENILE MYOCLONIC EPILEPSY
     Route: 048
     Dates: start: 20150921, end: 20150929
  8. DEPAKENE CHRONO [Suspect]
     Active Substance: VALPROATE SODIUM
     Indication: EPILEPSY
     Dosage: EXTENDED RELEASE
     Route: 048
     Dates: end: 20150922
  9. DEPAKENE CHRONO [Suspect]
     Active Substance: VALPROATE SODIUM
     Dosage: EXTENDED RELEASE
     Route: 048
     Dates: start: 201510, end: 201510
  10. LAMICTAL [Suspect]
     Active Substance: LAMOTRIGINE
     Route: 048
     Dates: start: 20150930, end: 20151006

REACTIONS (2)
  - Toxic skin eruption [Recovered/Resolved]
  - Drug eruption [Recovered/Resolved]

NARRATIVE: CASE EVENT DATE: 20151006
